FAERS Safety Report 4454639-8 (Version None)
Quarter: 2004Q3

REPORT INFORMATION
  Report Type: 
  Country: None (occurrence: None)
  Receive Date: 20040921
  Receipt Date: 20040917
  Transmission Date: 20050211
  Serious: Yes (Death, Hospitalization, Other)
  Sender: FDA-Public Use
  Company Number: PHBS2004CH12306

PATIENT
  Age: 4 Year
  Sex: Female

DRUGS (12)
  1. SANDIMMUNE [Suspect]
     Indication: JUVENILE ARTHRITIS
     Dosage: 120 MG/DAY
  2. THALIDOMIDE [Suspect]
     Dosage: 50 MG/DAY
     Dates: start: 20040623
  3. METHOTREXATE [Suspect]
     Dosage: 10 MG, QW
  4. AMOXICILLIN + CLAVULANIC ACID [Suspect]
     Dosage: 21 ML/DAY
     Dates: start: 20040707, end: 20040727
  5. SOLU-MEDROL [Suspect]
     Dosage: 1 G/1.73 M2 PER 2 WEEKS
     Dates: start: 20040325
  6. REMICADE [Suspect]
     Dosage: 80 MG, QMO
     Dates: start: 20031205, end: 20040614
  7. PROXEN [Concomitant]
     Dosage: 250 MG/DAY
  8. NORVASC [Concomitant]
     Dosage: 7.5 MG/DAY
  9. LEUCOVORIN CALCIUM [Concomitant]
     Dosage: 5 MG, QW
  10. CALCIMAGON-D3 [Concomitant]
     Dosage: 500 MG + 400 UI
  11. MALTOFER [Concomitant]
     Dosage: 14 MG/DAY
  12. NITROFURANTOIN [Concomitant]
     Dosage: 50 MG/DAY

REACTIONS (9)
  - CARDIAC ARREST [None]
  - CULTURE URINE POSITIVE [None]
  - GASTROENTERITIS [None]
  - GENERAL PHYSICAL HEALTH DETERIORATION [None]
  - HYPOVENTILATION [None]
  - PYREXIA [None]
  - SEPSIS [None]
  - SUDDEN DEATH [None]
  - URINARY TRACT INFECTION [None]
